FAERS Safety Report 11626697 (Version 1)
Quarter: 2015Q4

REPORT INFORMATION
  Report Type: Spontaneous
  Country: US (occurrence: US)
  Receive Date: 20151013
  Receipt Date: 20151013
  Transmission Date: 20160304
  Serious: No
  Sender: FDA-Public Use
  Company Number: US-BAYER-2015-441656

PATIENT
  Age: 77 Year
  Sex: Female
  Weight: 54.42 kg

DRUGS (2)
  1. ZESTRIL [Concomitant]
     Active Substance: LISINOPRIL
     Dosage: UNK
  2. MIRALAX [Suspect]
     Active Substance: POLYETHYLENE GLYCOL 3350
     Indication: LARGE INTESTINE POLYP
     Dosage: 1 DF, QD
     Route: 048
     Dates: start: 201506

REACTIONS (3)
  - Flatulence [None]
  - Burning sensation [Not Recovered/Not Resolved]
  - Product use issue [None]
